FAERS Safety Report 14585874 (Version 1)
Quarter: 2018Q1

REPORT INFORMATION
  Report Type: Spontaneous
  Country: US (occurrence: US)
  Receive Date: 20180301
  Receipt Date: 20180301
  Transmission Date: 20180509
  Serious: Yes (Hospitalization)
  Sender: FDA-Public Use
  Company Number: US-TEVA-2018-US-864334

PATIENT
  Age: 35 Year
  Sex: Male

DRUGS (1)
  1. METHOTREXATE. [Suspect]
     Active Substance: METHOTREXATE
     Indication: OEDEMA PERIPHERAL
     Route: 065
     Dates: start: 20180215, end: 20180215

REACTIONS (8)
  - Speech disorder [Unknown]
  - Swelling face [Unknown]
  - Feeding disorder [Unknown]
  - Pharyngeal oedema [Unknown]
  - Pyrexia [Unknown]
  - Dyspnoea [Unknown]
  - Asthenia [Unknown]
  - Generalised oedema [Unknown]

NARRATIVE: CASE EVENT DATE: 20180216
